FAERS Safety Report 8009113-9 (Version None)
Quarter: 2011Q4

REPORT INFORMATION
  Report Type: 
  Country: None (occurrence: None)
  Receive Date: 20111227
  Receipt Date: 20111214
  Transmission Date: 20120403
  Serious: Yes (Hospitalization)
  Sender: FDA-Public Use
  Company Number: ES-CELGENEUS-144-21880-11121790

PATIENT
  Age: 64 Year
  Sex: Female

DRUGS (2)
  1. REVLIMID [Suspect]
     Dosage: 10 MILLIGRAM
     Route: 048
     Dates: start: 20110522, end: 20111009
  2. DEXAMETHASONE [Concomitant]
     Route: 065

REACTIONS (2)
  - LYMPHATIC DISORDER [None]
  - TOXICITY TO VARIOUS AGENTS [None]
